FAERS Safety Report 5420447-4 (Version None)
Quarter: 2007Q3

REPORT INFORMATION
  Report Type: 
  Country: None (occurrence: None)
  Receive Date: 20070817
  Receipt Date: 20070817
  Transmission Date: 20080115
  Serious: Yes (Hospitalization)
  Sender: FDA-Public Use
  Company Number: None

PATIENT
  Age: 18 Year
  Sex: Female
  Weight: 86.1834 kg

DRUGS (1)
  1. GADOLINIUM CONTRAST [Suspect]
     Indication: NUCLEAR MAGNETIC RESONANCE IMAGING BRAIN
     Dosage: 1CC PER 10LBS ONCE FOREARM 4:00 PM
     Dates: start: 20070808

REACTIONS (2)
  - CONTRAST MEDIA REACTION [None]
  - TRISMUS [None]
